FAERS Safety Report 6907336-0 (Version None)
Quarter: 2010Q3

REPORT INFORMATION
  Report Type: 
  Country: None (occurrence: None)
  Receive Date: 20100802
  Receipt Date: 20100719
  Transmission Date: 20110219
  Serious: Yes (Hospitalization, Disabling)
  Sender: FDA-Public Use
  Company Number: 2010-2137

PATIENT
  Age: 13 Year
  Sex: Male
  Weight: 69 kg

DRUGS (1)
  1. SOMATULINE DEPOT [Suspect]
     Indication: BODY HEIGHT INCREASED
     Dosage: 90 MG (90 MG, 1 IN 28 D), INTRAMUSCULAR
     Route: 030
     Dates: start: 20100517

REACTIONS (5)
  - COLITIS [None]
  - CONSTIPATION [None]
  - FATIGUE [None]
  - INJECTION SITE PAIN [None]
  - SUBILEUS [None]
